FAERS Safety Report 9113761 (Version 1)
Quarter: 2013Q1

REPORT INFORMATION
  Report Type: Spontaneous
  Country: US (occurrence: US)
  Receive Date: 20130208
  Receipt Date: 20130208
  Transmission Date: 20140127
  Serious: Yes (Hospitalization)
  Sender: FDA-Public Use
  Company Number: US-ELI_LILLY_AND_COMPANY-US201211004095

PATIENT
  Age: 71 Year
  Sex: Female

DRUGS (3)
  1. FORTEO [Suspect]
     Indication: OSTEOPOROSIS
     Dosage: 20 UG, QD
     Dates: start: 20121109
  2. FORTEO [Suspect]
     Dosage: 20 UG, QD
     Dates: start: 20121109, end: 20121204
  3. LOSARTAN [Concomitant]

REACTIONS (14)
  - Dyspnoea [Not Recovered/Not Resolved]
  - Chest discomfort [Recovered/Resolved]
  - Abdominal discomfort [Recovered/Resolved]
  - Bone pain [Unknown]
  - Pulmonary congestion [Recovering/Resolving]
  - Nasopharyngitis [Recovering/Resolving]
  - Oropharyngeal pain [Recovering/Resolving]
  - Muscular weakness [Unknown]
  - Pain in extremity [Unknown]
  - Incorrect dose administered [Unknown]
  - Heart rate increased [Not Recovered/Not Resolved]
  - Inappropriate schedule of drug administration [Unknown]
  - Injection site bruising [Unknown]
  - Injection site haemorrhage [Unknown]
